FAERS Safety Report 12726344 (Version 1)
Quarter: 2016Q3

REPORT INFORMATION
  Report Type: Spontaneous
  Country: US (occurrence: US)
  Receive Date: 20160906
  Receipt Date: 20160906
  Transmission Date: 20161109
  Serious: No
  Sender: FDA-Public Use
  Company Number: None

PATIENT
  Age: 38 Year
  Sex: Female
  Weight: 78.75 kg

DRUGS (11)
  1. MULTIVITAMIN [Concomitant]
     Active Substance: VITAMINS
  2. ZINC [Concomitant]
     Active Substance: ZINC\ZINC CHLORIDE
  3. CAMBIA [Concomitant]
     Active Substance: DICLOFENAC POTASSIUM
  4. VITAMIN D [Concomitant]
     Active Substance: CHOLECALCIFEROL
  5. BIOTIN CRANBERRY [Concomitant]
  6. CELEXA [Concomitant]
     Active Substance: CITALOPRAM HYDROBROMIDE
  7. NORTRIPTYLINE [Concomitant]
     Active Substance: NORTRIPTYLINE
  8. VITAMIN C [Concomitant]
     Active Substance: ASCORBIC ACID
  9. ISOMETHEPTENE MUCATE, DICHLORALPHENAZONE, AND ACETAMINOPHEN MACOVEN [Suspect]
     Active Substance: ACETAMINOPHEN\DICHLORALPHENAZONE\ISOMETHEPTENE MUCATE
     Indication: MIGRAINE
     Route: 048
     Dates: start: 20160727, end: 20160906
  10. TOPAMAX [Concomitant]
     Active Substance: TOPIRAMATE
  11. IRON [Concomitant]
     Active Substance: IRON

REACTIONS (2)
  - Pain in extremity [None]
  - Limb discomfort [None]

NARRATIVE: CASE EVENT DATE: 20160906
